FAERS Safety Report 21920662 (Version 2)
Quarter: 2023Q1

REPORT INFORMATION
  Report Type: Spontaneous
  Country: US (occurrence: US)
  Receive Date: 20230127
  Receipt Date: 20230203
  Transmission Date: 20230417
  Serious: Yes (Death, Hospitalization)
  Sender: FDA-Public Use
  Company Number: US-SERVIER-S23000825

PATIENT

DRUGS (6)
  1. ASPARLAS [Suspect]
     Active Substance: CALASPARGASE PEGOL-MKNL
     Indication: Acute lymphocytic leukaemia
     Dosage: 2500 UNITS/M2 ON DAY 4
     Route: 042
     Dates: start: 20221212, end: 20221212
  2. CYTARABINE [Suspect]
     Active Substance: CYTARABINE
     Indication: Acute lymphocytic leukaemia
     Dosage: 70 MG ON D0
     Route: 037
     Dates: start: 20221208
  3. VINCRISTINE [Suspect]
     Active Substance: VINCRISTINE
     Indication: Acute lymphocytic leukaemia
     Dosage: 1.5 MG/M2 ON D1, D8, D15, D22
     Route: 042
     Dates: start: 20221209
  4. DAUNORUBICIN [Suspect]
     Active Substance: DAUNORUBICIN
     Indication: Acute lymphocytic leukaemia
     Dosage: 25 MG/M2 ON D1, D8, D15, D22
     Route: 042
     Dates: start: 20221209
  5. DEXAMETHASONE [Suspect]
     Active Substance: DEXAMETHASONE
     Indication: Acute lymphocytic leukaemia
     Dosage: 5 MG/M2, BID ON D1-D14
     Route: 048
     Dates: start: 20221209
  6. METHOTREXATE [Suspect]
     Active Substance: METHOTREXATE
     Indication: Acute lymphocytic leukaemia
     Dosage: 12 MG ON D8, D29
     Route: 037
     Dates: start: 20221230

REACTIONS (10)
  - Acute respiratory distress syndrome [Fatal]
  - Haemorrhage intracranial [Not Recovered/Not Resolved]
  - Venoocclusive liver disease [Recovering/Resolving]
  - Respiratory distress [Not Recovered/Not Resolved]
  - Cerebral infarction [Not Recovered/Not Resolved]
  - Encephalopathy [Not Recovered/Not Resolved]
  - Portal vein thrombosis [Not Recovered/Not Resolved]
  - Hypoalbuminaemia [Unknown]
  - Hypervolaemia [Unknown]
  - Bacillus infection [Unknown]

NARRATIVE: CASE EVENT DATE: 20221201
